FAERS Safety Report 13764425 (Version 1)
Quarter: 2017Q3

REPORT INFORMATION
  Report Type: Spontaneous
  Country: US (occurrence: US)
  Receive Date: 20170718
  Receipt Date: 20170718
  Transmission Date: 20171127
  Serious: Yes (Other)
  Sender: FDA-Public Use
  Company Number: US-BAYER-2017-134167

PATIENT
  Age: 36 Year
  Sex: Female

DRUGS (9)
  1. LISINOPRIL. [Concomitant]
     Active Substance: LISINOPRIL
  2. MIRENA [Suspect]
     Active Substance: LEVONORGESTREL
     Dosage: 20 MCG/24HR, CONT
     Route: 015
  3. ACETYLSALICYLIC ACID({=100 MG) [Suspect]
     Active Substance: ASPIRIN
  4. BETAMETHASONE. [Concomitant]
     Active Substance: BETAMETHASONE
  5. HEPARIN [Concomitant]
     Active Substance: HEPARIN SODIUM
  6. WARFARIN [Concomitant]
     Active Substance: WARFARIN
  7. METOPROLOL SUCCINATE. [Concomitant]
     Active Substance: METOPROLOL SUCCINATE
  8. FUROSEMIDE. [Concomitant]
     Active Substance: FUROSEMIDE
  9. SPIRONOLACTONE. [Concomitant]
     Active Substance: SPIRONOLACTONE

REACTIONS (5)
  - Device expulsion [None]
  - Drug ineffective [None]
  - Pregnancy with contraceptive device [None]
  - Exposure during pregnancy [None]
  - Premature delivery [None]
